FAERS Safety Report 7098206-9 (Version None)
Quarter: 2010Q4

REPORT INFORMATION
  Report Type: 
  Country: None (occurrence: None)
  Receive Date: 20101105
  Receipt Date: 20101013
  Transmission Date: 20110411
  Serious: Yes (Other)
  Sender: FDA-Public Use
  Company Number: 2008EU001559

PATIENT
  Age: 23 Year
  Sex: Male
  Weight: 60 kg

DRUGS (7)
  1. PROTOPIC [Suspect]
     Indication: DERMATITIS ATOPIC
     Dosage: 0.1% BID, TOPICAL, 0.1%. BID, TOPICAL, 0.1%, BID, TOPICAL
     Route: 061
     Dates: start: 20050426, end: 20050529
  2. PROTOPIC [Suspect]
     Indication: DERMATITIS ATOPIC
     Dosage: 0.1% BID, TOPICAL, 0.1%. BID, TOPICAL, 0.1%, BID, TOPICAL
     Route: 061
     Dates: start: 20070329, end: 20080306
  3. PROTOPIC [Suspect]
     Indication: DERMATITIS ATOPIC
     Dosage: 0.1% BID, TOPICAL, 0.1%. BID, TOPICAL, 0.1%, BID, TOPICAL
     Route: 061
     Dates: start: 20080306, end: 20080618
  4. DESONIDE [Suspect]
  5. DERMOVAL (CLOBETASOL PROPIONATE) [Suspect]
  6. EFFICORT (HYDROCORTISONE ACEPONATE) [Suspect]
  7. DEXERYL (WHITE SOFT PARAFFIN, PARAFFIN LIQUID) [Concomitant]

REACTIONS (7)
  - DRUG INEFFECTIVE [None]
  - LIP NEOPLASM MALIGNANT STAGE UNSPECIFIED [None]
  - ORAL CANDIDIASIS [None]
  - PLATELET COUNT INCREASED [None]
  - RED BLOOD CELL SEDIMENTATION RATE INCREASED [None]
  - SKIN PAPILLOMA [None]
  - VIRAL INFECTION [None]
